FAERS Safety Report 4275999-7 (Version None)
Quarter: 2004Q1

REPORT INFORMATION
  Report Type: 
  Country: None (occurrence: None)
  Receive Date: 20040121
  Receipt Date: 20030522
  Transmission Date: 20041129
  Serious: No
  Sender: FDA-Public Use
  Company Number: US-GLAXOSMITHKLINE-A0409388A

PATIENT
  Age: 53 Year
  Sex: Female

DRUGS (7)
  1. VALTREX [Suspect]
     Route: 048
     Dates: start: 20030424
  2. AXID [Concomitant]
  3. TENORMIN [Concomitant]
  4. ESTRADERM [Concomitant]
     Route: 062
  5. ULTRAM [Concomitant]
  6. XANAX [Concomitant]
  7. TYLENOL W/ CODEINE NO. 3 [Concomitant]

REACTIONS (1)
  - HEART RATE INCREASED [None]
